FAERS Safety Report 8483269-6 (Version None)
Quarter: 2012Q3

REPORT INFORMATION
  Report Type: 
  Country: None (occurrence: None)
  Receive Date: 20120702
  Receipt Date: 20120620
  Transmission Date: 20120928
  Serious: Yes (Other)
  Sender: FDA-Public Use
  Company Number: JP-VERTEX PHARMACEUTICALS INC.-AE-2012-009361

PATIENT
  Age: 65 Year

DRUGS (3)
  1. TELAVIC (TELAPREVIR) [Suspect]
     Indication: HEPATITIS C
     Route: 048
     Dates: start: 20120605, end: 20120607
  2. RIBAVIRIN [Concomitant]
     Indication: HEPATITIS C
     Route: 048
     Dates: start: 20120605, end: 20120607
  3. PEGINTERFERON ALFA-2B [Concomitant]
     Route: 058
     Dates: start: 20120605, end: 20120605

REACTIONS (1)
  - RENAL DISORDER [None]
